FAERS Safety Report 10984411 (Version 1)
Quarter: 2015Q2

REPORT INFORMATION
  Report Type: Spontaneous
  Country: FR (occurrence: FR)
  Receive Date: 20150403
  Receipt Date: 20150403
  Transmission Date: 20150821
  Serious: Yes (Death, Other)
  Sender: FDA-Public Use
  Company Number: FR-ASTRAZENECA-2015SE29378

PATIENT
  Age: 1161 Month
  Sex: Male

DRUGS (8)
  1. KARDEGIC [Suspect]
     Active Substance: ASPIRIN LYSINE
     Route: 048
     Dates: end: 200908
  2. TRIATEC [Suspect]
     Active Substance: RAMIPRIL
     Route: 065
  3. INEXIUM [Suspect]
     Active Substance: ESOMEPRAZOLE
     Route: 048
     Dates: end: 200908
  4. SPAGULAX [Suspect]
     Active Substance: PLANTAGO OVATA SEED
     Route: 065
  5. TRIMETAZIDINE [Suspect]
     Active Substance: TRIMETAZIDINE
     Route: 048
     Dates: end: 200908
  6. MEBEVERINE [Suspect]
     Active Substance: MEBEVERINE
     Route: 065
  7. FUROSEMIDE. [Suspect]
     Active Substance: FUROSEMIDE
     Route: 065
  8. PERMIXON [Suspect]
     Active Substance: SAW PALMETTO
     Route: 065

REACTIONS (5)
  - Renal failure [Unknown]
  - Hepatic encephalopathy [Unknown]
  - Jaundice [Fatal]
  - Multi-organ failure [Fatal]
  - Cholestasis [Fatal]

NARRATIVE: CASE EVENT DATE: 200908
